FAERS Safety Report 22177236 (Version 2)
Quarter: 2023Q2

REPORT INFORMATION
  Report Type: Spontaneous
  Country: JP (occurrence: JP)
  Receive Date: 20230405
  Receipt Date: 20230510
  Transmission Date: 20230722
  Serious: Yes (Other)
  Sender: FDA-Public Use
  Company Number: JP-ELI_LILLY_AND_COMPANY-JP202303016116

PATIENT
  Age: 75 Year
  Sex: Male

DRUGS (12)
  1. CYRAMZA [Suspect]
     Active Substance: RAMUCIRUMAB
     Indication: Product used for unknown indication
     Dosage: UNK
     Route: 041
     Dates: start: 20230215, end: 20230315
  2. PACLITAXEL [Concomitant]
     Active Substance: PACLITAXEL
     Dosage: UNK
     Route: 065
     Dates: start: 20230215, end: 20230315
  3. ISOSORBIDE DINITRATE [Concomitant]
     Active Substance: ISOSORBIDE DINITRATE
     Dosage: 40 MG, DAILY
     Route: 062
  4. ASPIRIN [Concomitant]
     Active Substance: ASPIRIN
     Dosage: 100 MG, DAILY
     Route: 048
  5. NEXIUM [Concomitant]
     Active Substance: ESOMEPRAZOLE MAGNESIUM
     Dosage: 20 MG, DAILY
     Route: 048
  6. TULOBUTEROL [Concomitant]
     Active Substance: TULOBUTEROL
     Dosage: 2 MG, DAILY
     Route: 062
  7. MIGLITOL [Concomitant]
     Active Substance: MIGLITOL
     Dosage: 50 MG, TID
     Route: 048
  8. JANUVIA [Concomitant]
     Active Substance: SITAGLIPTIN PHOSPHATE
     Dosage: 50 MG, DAILY
     Route: 048
  9. TRAMADOL HYDROCHLORIDE [Concomitant]
     Active Substance: TRAMADOL HYDROCHLORIDE
     Dosage: 100 MG, DAILY
     Route: 048
  10. KETOPROFEN [Concomitant]
     Active Substance: KETOPROFEN
     Dosage: 40 MG, DAILY
     Route: 062
  11. ICOSAPENT ETHYL [Concomitant]
     Active Substance: ICOSAPENT ETHYL
     Dosage: 900 MG, DAILY
     Route: 048
  12. METHYLCOBALAMIN [Concomitant]
     Active Substance: METHYLCOBALAMIN
     Dosage: 500 UG, TID
     Route: 048

REACTIONS (1)
  - Pneumonitis [Unknown]
